FAERS Safety Report 6656726-2 (Version None)
Quarter: 2010Q1

REPORT INFORMATION
  Report Type: 
  Country: None (occurrence: None)
  Receive Date: 20100324
  Receipt Date: 20100311
  Transmission Date: 20100710
  Serious: Yes (Hospitalization)
  Sender: FDA-Public Use
  Company Number: 232601J10USA

PATIENT
  Age: 34 Year
  Sex: Male

DRUGS (3)
  1. REBIF [Suspect]
     Indication: MULTIPLE SCLEROSIS
     Dosage: 44 MCG, 3 IN 1 WEEKS, SUBCUTANEOUS; 44 MCG, 3 IN 1 WEEKS, SUBCUTANEOUS
     Route: 058
     Dates: start: 20090625, end: 20100123
  2. REBIF [Suspect]
     Indication: MULTIPLE SCLEROSIS
     Dosage: 44 MCG, 3 IN 1 WEEKS, SUBCUTANEOUS; 44 MCG, 3 IN 1 WEEKS, SUBCUTANEOUS
     Route: 058
     Dates: start: 20100213, end: 20100201
  3. BACLOFEN [Concomitant]

REACTIONS (6)
  - ABDOMINAL ADHESIONS [None]
  - CONDITION AGGRAVATED [None]
  - DEPRESSION [None]
  - GASTROINTESTINAL INFECTION [None]
  - LARGE INTESTINE PERFORATION [None]
  - MULTIPLE SCLEROSIS [None]
